FAERS Safety Report 9282273 (Version 2)
Quarter: 2014Q1

REPORT INFORMATION
  Report Type: Spontaneous
  Country: US (occurrence: US)
  Receive Date: 20130510
  Receipt Date: 20140128
  Transmission Date: 20141002
  Serious: No
  Sender: FDA-Public Use
  Company Number: US-PFIZER INC-2013144226

PATIENT
  Age: 84 Year
  Sex: Male

DRUGS (1)
  1. INLYTA [Suspect]
     Indication: RENAL CANCER
     Dosage: 2 MG, 1X/DAY
     Route: 048
     Dates: start: 20130329

REACTIONS (1)
  - Decreased appetite [Unknown]
